FAERS Safety Report 4600283-9 (Version None)
Quarter: 2005Q1

REPORT INFORMATION
  Report Type: 
  Country: None (occurrence: None)
  Receive Date: 20050303
  Receipt Date: 20050208
  Transmission Date: 20050727
  Serious: Yes (Death)
  Sender: FDA-Public Use
  Company Number: FR_041205458

PATIENT
  Age: 65 Year
  Sex: Male

DRUGS (4)
  1. ZYPREXA-RAPID                             OLANZAPINE [Suspect]
     Indication: MANIA
     Dosage: 10 MG DAY
     Route: 030
     Dates: start: 20041213, end: 20041213
  2. TERCIAN (CYAMEMAZINE) [Concomitant]
  3. LOXAPINE SUCCINATE [Concomitant]
  4. TRANXENE [Concomitant]

REACTIONS (1)
  - SEDATION [None]
